FAERS Safety Report 5141115-2 (Version None)
Quarter: 2006Q4

REPORT INFORMATION
  Report Type: 
  Country: None (occurrence: None)
  Receive Date: 20061026
  Receipt Date: 20061020
  Transmission Date: 20070319
  Serious: Yes (Hospitalization)
  Sender: FDA-Public Use
  Company Number: GXKR2006GB06594

PATIENT
  Age: 86 Year
  Sex: Female
  Weight: 40.1 kg

DRUGS (7)
  1. TRAMADOL HCL [Suspect]
     Indication: PAIN
     Dosage: 50 + 100 MG, QID, ORAL - SEE IMAGE
     Route: 048
     Dates: start: 20060804, end: 20060821
  2. CO-CODAMOL (CODEINE PHOSPHATE, PARACETAMOL) [Concomitant]
  3. LANSOPRAZOLE [Concomitant]
  4. LOPERAMIDE HCL [Concomitant]
  5. RISEDRONATE SODIUM [Concomitant]
  6. VISCUM ALBUM (VISCUM ALBUM) [Concomitant]
  7. VITAMIN B GROUP (VITAMIN B GROUP) [Concomitant]

REACTIONS (2)
  - LIVER FUNCTION TEST ABNORMAL [None]
  - PAIN [None]
